FAERS Safety Report 8106887 (Version 37)
Quarter: 2016Q4

REPORT INFORMATION
  Report Type: Report from Study
  Country: CA (occurrence: CA)
  Receive Date: 20110825
  Receipt Date: 20161110
  Transmission Date: 20170207
  Serious: Yes (Death, Hospitalization, Other)
  Sender: FDA-Public Use
  Company Number: PHHY2010CA41577

PATIENT
  Age: 80 Year
  Sex: Female

DRUGS (9)
  1. ATIVAN [Concomitant]
     Active Substance: LORAZEPAM
     Indication: PRODUCT USED FOR UNKNOWN INDICATION
     Route: 065
  2. NORVASC [Concomitant]
     Active Substance: AMLODIPINE BESYLATE
     Indication: PRODUCT USED FOR UNKNOWN INDICATION
     Dosage: 3 DF, 2 TABLETS AM AND 1 TABLET PM
     Route: 065
  3. SANDOSTATIN LAR DEPOT [Suspect]
     Active Substance: OCTREOTIDE ACETATE
     Indication: GASTRINOMA
     Dosage: 20 MG, QMO (EVERY 4 WEEKS)
     Route: 030
     Dates: start: 20100621
  4. CODEINE [Concomitant]
     Active Substance: CODEINE
     Indication: PAIN
     Route: 065
  5. PREVACID [Concomitant]
     Active Substance: LANSOPRAZOLE
     Indication: PRODUCT USED FOR UNKNOWN INDICATION
     Route: 065
  6. SANDOSTATIN [Suspect]
     Active Substance: OCTREOTIDE ACETATE
     Indication: GASTRINOMA
     Dosage: 50 UG, UNK
     Route: 058
     Dates: start: 20100610, end: 20100610
  7. SANDOSTATIN [Suspect]
     Active Substance: OCTREOTIDE ACETATE
     Dosage: 100 MG, UNK
     Route: 065
  8. LANSOPRAZOLE. [Concomitant]
     Active Substance: LANSOPRAZOLE
     Indication: PRODUCT USED FOR UNKNOWN INDICATION
     Dosage: UNK
     Route: 065
  9. GRAVOL [Concomitant]
     Active Substance: DIMENHYDRINATE
     Indication: PRODUCT USED FOR UNKNOWN INDICATION
     Dosage: UNK
     Route: 065

REACTIONS (30)
  - Liver disorder [Unknown]
  - Confusional state [Recovering/Resolving]
  - Insomnia [Recovering/Resolving]
  - Vaginal prolapse [Unknown]
  - Gait disturbance [Recovering/Resolving]
  - Dehydration [Unknown]
  - Malaise [Unknown]
  - Abdominal pain upper [Recovering/Resolving]
  - Abdominal discomfort [Unknown]
  - Death [Fatal]
  - Arthritis [Unknown]
  - Weight decreased [Unknown]
  - Decreased appetite [Recovering/Resolving]
  - Vomiting [Unknown]
  - Blood pressure increased [Recovering/Resolving]
  - Depressed mood [Unknown]
  - Poor quality sleep [Recovering/Resolving]
  - Influenza like illness [Recovering/Resolving]
  - Bladder prolapse [Unknown]
  - Asthenia [Unknown]
  - Heart rate increased [Unknown]
  - Heart rate decreased [Unknown]
  - Heart rate irregular [Unknown]
  - Thermal burn [Recovering/Resolving]
  - Gastroenteritis viral [Unknown]
  - Drug abuse [Unknown]
  - Fall [Unknown]
  - Body temperature decreased [Unknown]
  - Pain [Unknown]
  - Micturition disorder [Not Recovered/Not Resolved]

NARRATIVE: CASE EVENT DATE: 20100621
